FAERS Safety Report 5029125-7 (Version None)
Quarter: 2006Q2

REPORT INFORMATION
  Report Type: 
  Country: None (occurrence: None)
  Receive Date: 20060613
  Receipt Date: 20060531
  Transmission Date: 20061013
  Serious: Yes (Other)
  Sender: FDA-Public Use
  Company Number: US017695

PATIENT
  Age: 67 Year
  Sex: Female

DRUGS (1)
  1. TRISENOX [Suspect]
     Indication: ACUTE PROMYELOCYTIC LEUKAEMIA
     Dosage: 9  MG QD INTRAVENOUS DRIP
     Route: 041
     Dates: start: 20050714, end: 20050822

REACTIONS (1)
  - WHITE BLOOD CELL COUNT DECREASED [None]
